FAERS Safety Report 9802578 (Version 1)
Quarter: 2014Q1

REPORT INFORMATION
  Report Type: Spontaneous
  Country: PH (occurrence: PH)
  Receive Date: 20140108
  Receipt Date: 20140108
  Transmission Date: 20141002
  Serious: Yes (Death, Other)
  Sender: FDA-Public Use
  Company Number: PH-009507513-1401PHL001568

PATIENT
  Age: 61 Year
  Sex: Female

DRUGS (1)
  1. JANUMET [Suspect]
     Dosage: ONE TABLET ONCE A DAY
     Route: 048
     Dates: start: 20120918

REACTIONS (1)
  - Cardio-respiratory arrest [Fatal]
